FAERS Safety Report 6182730-7 (Version None)
Quarter: 2009Q2

REPORT INFORMATION
  Report Type: 
  Country: None (occurrence: None)
  Receive Date: 20090507
  Receipt Date: 20090428
  Transmission Date: 20091009
  Serious: Yes (Hospitalization)
  Sender: FDA-Public Use
  Company Number: US-ALEXION-A200900342

PATIENT
  Sex: Female

DRUGS (12)
  1. SOLIRIS [Suspect]
     Indication: PAROXYSMAL NOCTURNAL HAEMOGLOBINURIA
     Dosage: 600 MG, QWK X4
     Route: 042
     Dates: start: 20081010
  2. SOLIRIS [Suspect]
     Dosage: 900 MG, Q2WK
     Route: 042
     Dates: start: 20081101
  3. COUMADIN [Concomitant]
     Dosage: 7.5 MG ALTERNATING WITH 5 MG
  4. ANTIVERT                           /00007101/ [Concomitant]
     Dosage: UNK
  5. LORCET-HD [Concomitant]
     Dosage: UNK
  6. AMBIEN [Concomitant]
     Dosage: 10 MG, H.S
  7. MEGACE [Concomitant]
     Indication: ANOREXIA
     Dosage: 20 MG, PRN
  8. TYLENOL (CAPLET) [Concomitant]
     Indication: PAIN
     Dosage: UNK, PRN
  9. LASIX [Concomitant]
     Indication: SWELLING
     Dosage: 20 MG, QD PRN
  10. ACIPHEX [Concomitant]
     Dosage: 20 MG, QD
  11. VITAMIN B-12 [Concomitant]
     Dosage: 500 UG, QD
  12. TYLENOL (CAPLET) [Concomitant]
     Dosage: UNK

REACTIONS (2)
  - FALL [None]
  - HIP FRACTURE [None]
